FAERS Safety Report 8868380 (Version 1)
Quarter: 2012Q4

REPORT INFORMATION
  Report Type: 
  Country: US (occurrence: US)
  Receive Date: 20121025
  Receipt Date: 20121025
  Transmission Date: 20130627
  Serious: No
  Sender: FDA-Public Use
  Company Number: US-AMGEN-USASP2012019580

PATIENT
  Sex: Female
  Weight: 155 kg

DRUGS (9)
  1. ENBREL [Suspect]
     Indication: PRODUCT USED FOR UNKNOWN INDICATION
     Dosage: 50 mg, qwk
     Route: 058
  2. HUMIRA [Concomitant]
     Dosage: 40 mg, UNK
  3. FOLIC ACID [Concomitant]
     Dosage: UNK
  4. SULFASALAZIN [Concomitant]
     Dosage: 500 mg, UNK
  5. PLAQUENIL                          /00072602/ [Concomitant]
     Dosage: 200 mg, UNK
  6. SPRINTEC [Concomitant]
     Dosage: UNK
  7. NAPROXEN [Concomitant]
     Dosage: 275 mg, UNK
  8. OMEPRAZOLE [Concomitant]
     Dosage: 10 mg, UNK
  9. LISINOPRIL/HYDROCHLOROTHIAZIDE [Concomitant]
     Dosage: UNK

REACTIONS (1)
  - Drug ineffective [Unknown]
